FAERS Safety Report 5055399-2 (Version None)
Quarter: 2006Q3

REPORT INFORMATION
  Report Type: 
  Country: None (occurrence: None)
  Receive Date: 20060718
  Receipt Date: 20060718
  Transmission Date: 20061208
  Serious: Yes (Hospitalization)
  Sender: FDA-Public Use
  Company Number: None

PATIENT
  Age: 67 Year
  Sex: Male

DRUGS (11)
  1. MORPHINE [Suspect]
     Indication: PAIN
     Dosage: 9.5 MG /DAY CI
  2. FINASTERIDE [Concomitant]
  3. ORLISTAT [Concomitant]
  4. LORAZEPAM [Concomitant]
  5. FUROSEMIDE [Concomitant]
  6. FELODIPINE [Concomitant]
  7. RANITIDINE [Concomitant]
  8. ZOCOR [Concomitant]
  9. ISOSORBIDE DINITRATE [Concomitant]
  10. LISINOPRIL [Concomitant]
  11. ATENOLOL [Concomitant]

REACTIONS (3)
  - ACUTE RESPIRATORY FAILURE [None]
  - LETHARGY [None]
  - SOMNOLENCE [None]
